FAERS Safety Report 14278126 (Version 2)
Quarter: 2018Q3

REPORT INFORMATION
  Report Type: Spontaneous
  Country: JP (occurrence: JP)
  Receive Date: 20171211
  Receipt Date: 20180807
  Transmission Date: 20181010
  Serious: Yes (Other)
  Sender: FDA-Public Use
  Company Number: JP-OTSUKA-BJ20114834

PATIENT
  Age: 0 Day
  Sex: Male
  Weight: 2 kg

DRUGS (4)
  1. RITODRINE [Concomitant]
     Active Substance: RITODRINE
     Dosage: 20 MG, QD
     Route: 064
     Dates: start: 20090210, end: 20090214
  2. ABILIFY [Suspect]
     Active Substance: ARIPIPRAZOLE
     Dosage: 3 MG, QD
     Route: 064
     Dates: start: 20081229
  3. ABILIFY [Suspect]
     Active Substance: ARIPIPRAZOLE
     Indication: DELUSIONAL DISORDER, EROTOMANIC TYPE
     Dosage: 6 MG, QD
     Route: 064
     Dates: start: 20081208, end: 20081228
  4. RITODRINE [Concomitant]
     Active Substance: RITODRINE
     Indication: THREATENED LABOUR
     Dosage: 15 MG, QD
     Route: 064
     Dates: start: 20081122, end: 20090112

REACTIONS (2)
  - Foetal exposure during pregnancy [Unknown]
  - Premature baby [Unknown]

NARRATIVE: CASE EVENT DATE: 20090320
